FAERS Safety Report 7066053-X (Version None)
Quarter: 2010Q4

REPORT INFORMATION
  Report Type: 
  Country: None (occurrence: None)
  Receive Date: 20101027
  Receipt Date: 20100917
  Transmission Date: 20110411
  Serious: No
  Sender: FDA-Public Use
  Company Number: HQWYE304021JUL04

PATIENT
  Sex: Female

DRUGS (4)
  1. PREMPRO [Suspect]
     Indication: HORMONE REPLACEMENT THERAPY
     Dosage: UNKNOWN
     Route: 048
     Dates: start: 19980608, end: 20000405
  2. CENESTIN [Suspect]
  3. PROMETRIUM [Suspect]
  4. PREFEST [Suspect]

REACTIONS (2)
  - CARDIAC DISORDER [None]
  - GALLBLADDER DISORDER [None]
